FAERS Safety Report 20008978 (Version 1)
Quarter: 2021Q4

REPORT INFORMATION
  Report Type: Spontaneous
  Country: US (occurrence: US)
  Receive Date: 20211029
  Receipt Date: 20211029
  Transmission Date: 20220304
  Serious: No
  Sender: FDA-Public Use
  Company Number: US-DRREDDYS-SPO/USA/21/0143171

PATIENT
  Age: 36 Year
  Sex: Male

DRUGS (1)
  1. ZENATANE [Suspect]
     Active Substance: ISOTRETINOIN
     Indication: Product used for unknown indication
     Dosage: RMA ISSUE DATE: 14/OCTOBER/2020 12:00:00 AM, 17/NOVEMBER/2020 12:00:00 AM, 05/JANUARY/2021 12:00:00

REACTIONS (1)
  - Treatment noncompliance [Unknown]
